FAERS Safety Report 5113131-8 (Version None)
Quarter: 2006Q3

REPORT INFORMATION
  Report Type: 
  Country: None (occurrence: None)
  Receive Date: 20060920
  Receipt Date: 20060905
  Transmission Date: 20061208
  Serious: Yes (Hospitalization, Other)
  Sender: FDA-Public Use
  Company Number: US200606003321

PATIENT
  Age: 33 Year
  Sex: Female
  Weight: 86.2 kg

DRUGS (3)
  1. ZYPREXA [Suspect]
     Dosage: 90 MG, ORAL
     Route: 048
  2. REMERON [Concomitant]
  3. ZOLOFT [Concomitant]

REACTIONS (8)
  - BLOOD CHOLESTEROL ABNORMAL [None]
  - DIABETES MELLITUS [None]
  - HEPATITIS VIRAL [None]
  - METABOLIC DISORDER [None]
  - POLYCYSTIC OVARIES [None]
  - PRESCRIBED OVERDOSE [None]
  - THROMBECTOMY [None]
  - VISION BLURRED [None]
